FAERS Safety Report 12091045 (Version 2)
Quarter: 2016Q1

REPORT INFORMATION
  Report Type: Spontaneous
  Country: JP (occurrence: JP)
  Receive Date: 20160218
  Receipt Date: 20160222
  Transmission Date: 20160526
  Serious: Yes (Congenital Anomaly)
  Sender: FDA-Public Use
  Company Number: JP-PFIZER INC-2005169950

PATIENT
  Sex: Male
  Weight: 2.71 kg

DRUGS (8)
  1. VIRACEPT [Suspect]
     Active Substance: NELFINAVIR MESYLATE
     Dosage: UNK
     Route: 064
     Dates: start: 20030509, end: 20031006
  2. RETROVIR [Suspect]
     Active Substance: ZIDOVUDINE
     Indication: HIV INFECTION
     Dosage: 400 MG, DAILY
     Route: 064
     Dates: start: 20030522, end: 20031006
  3. RETROVIR [Suspect]
     Active Substance: ZIDOVUDINE
     Dosage: UNK
     Route: 064
     Dates: start: 20031009, end: 20031111
  4. VIRACEPT [Suspect]
     Active Substance: NELFINAVIR MESYLATE
     Indication: HIV INFECTION
     Dosage: 2250 MG, DAILY
     Route: 064
     Dates: start: 20030428, end: 20030505
  5. EPIVIR [Suspect]
     Active Substance: LAMIVUDINE
     Dosage: UNK
     Route: 064
     Dates: start: 20031009, end: 20031111
  6. ZERIT [Suspect]
     Active Substance: STAVUDINE
     Indication: HIV INFECTION
     Dosage: 60 MG, DAILY
     Route: 064
     Dates: start: 20030428, end: 20030527
  7. EPIVIR [Suspect]
     Active Substance: LAMIVUDINE
     Indication: HIV INFECTION
     Dosage: 300 MG, DAILY
     Route: 064
     Dates: start: 20030428, end: 20031006
  8. VIRACEPT [Suspect]
     Active Substance: NELFINAVIR MESYLATE
     Dosage: UNK
     Route: 064
     Dates: start: 20031009, end: 20031111

REACTIONS (2)
  - Congenital hydronephrosis [Unknown]
  - Maternal exposure during pregnancy [Unknown]
